FAERS Safety Report 14241134 (Version 6)
Quarter: 2019Q2

REPORT INFORMATION
  Report Type: Spontaneous
  Country: US (occurrence: US)
  Receive Date: 20171130
  Receipt Date: 20190628
  Transmission Date: 20190711
  Serious: No
  Sender: FDA-Public Use
  Company Number: US-PFIZER INC-2017512800

PATIENT
  Age: 37 Year
  Sex: Female
  Weight: 70.31 kg

DRUGS (7)
  1. LISINOPRIL. [Concomitant]
     Active Substance: LISINOPRIL
     Indication: HYPERTENSION
     Dosage: UNK, 2X/DAY
     Route: 048
     Dates: start: 1991
  2. PREMARIN [Concomitant]
     Active Substance: ESTROGENS, CONJUGATED
     Indication: HORMONE REPLACEMENT THERAPY
     Dosage: 0.625 MG, 1X/DAY
     Route: 048
     Dates: start: 199912
  3. LYRICA [Suspect]
     Active Substance: PREGABALIN
     Indication: PHANTOM LIMB SYNDROME
     Dosage: 200 MG, AS NEEDED (5 TIMES PER DAY AS NEEDED)
     Route: 048
  4. LYRICA [Suspect]
     Active Substance: PREGABALIN
     Indication: NERVE INJURY
  5. LYRICA [Suspect]
     Active Substance: PREGABALIN
     Indication: NEURALGIA
  6. LYRICA [Suspect]
     Active Substance: PREGABALIN
     Indication: HEADACHE
     Dosage: 200 MG, UNK (200 MG BY MOUTH FIVE TIMES A DAY)
     Route: 048
  7. LYRICA [Suspect]
     Active Substance: PREGABALIN
     Indication: NEUROPATHY PERIPHERAL
     Dosage: 100 MG, 3X/DAY
     Route: 048
     Dates: start: 200508

REACTIONS (4)
  - Nasopharyngitis [Not Recovered/Not Resolved]
  - Off label use [Unknown]
  - Weight increased [Not Recovered/Not Resolved]
  - Prescribed overdose [Unknown]

NARRATIVE: CASE EVENT DATE: 200510
